FAERS Safety Report 14225287 (Version 1)
Quarter: 2017Q4

REPORT INFORMATION
  Report Type: Report from Study
  Country: CN (occurrence: CN)
  Receive Date: 20171127
  Receipt Date: 20171127
  Transmission Date: 20180321
  Serious: Yes (Hospitalization, Other)
  Sender: FDA-Public Use
  Company Number: CN-ROCHE-1969744

PATIENT
  Sex: Male
  Weight: 52 kg

DRUGS (1)
  1. AVASTIN [Suspect]
     Active Substance: BEVACIZUMAB
     Indication: COLON CANCER
     Route: 041
     Dates: start: 20160928, end: 20171109

REACTIONS (9)
  - Herpes zoster [Unknown]
  - Asthenia [Unknown]
  - Cholecystitis [Recovering/Resolving]
  - Gallbladder pain [Unknown]
  - Skin ulcer [Unknown]
  - Nasopharyngitis [Unknown]
  - Pneumonia [Unknown]
  - Biliary tract disorder [Unknown]
  - Immunodeficiency [Unknown]
